FAERS Safety Report 8240644-2 (Version None)
Quarter: 2012Q1

REPORT INFORMATION
  Report Type: 
  Country: None (occurrence: None)
  Receive Date: 20120328
  Receipt Date: 20120322
  Transmission Date: 20120608
  Serious: Yes (Other)
  Sender: FDA-Public Use
  Company Number: US-PFIZER INC-2012075211

PATIENT
  Sex: Female
  Weight: 64 kg

DRUGS (8)
  1. RHINOCORT [Concomitant]
  2. LUMIGAN [Concomitant]
     Indication: GLAUCOMA
  3. ACETYLSALICYLIC ACID [Concomitant]
     Dosage: 81 MG, 1X/DAY
  4. BELIMUMAB [Concomitant]
     Dosage: ONE EVERY 28 DAYS
     Route: 042
  5. PROTONIX [Suspect]
     Indication: GASTROOESOPHAGEAL REFLUX DISEASE
     Dosage: 40 MG, 1X/DAY
     Route: 048
  6. TYLENOL [Concomitant]
     Dosage: 500 MG DAILY
  7. PLAQUENIL [Concomitant]
     Dosage: 200 MG, DAILY
  8. PROTONIX [Suspect]
     Indication: HIATUS HERNIA

REACTIONS (4)
  - LABORATORY TEST ABNORMAL [None]
  - ABDOMINAL PAIN UPPER [None]
  - SYSTEMIC LUPUS ERYTHEMATOSUS [None]
  - AUTOIMMUNE THYROIDITIS [None]
